FAERS Safety Report 7634254-5 (Version None)
Quarter: 2011Q3

REPORT INFORMATION
  Report Type: 
  Country: None (occurrence: None)
  Receive Date: 20110725
  Receipt Date: 20110714
  Transmission Date: 20111222
  Serious: Yes (Other)
  Sender: FDA-Public Use
  Company Number: US-GENZYME-CLOF-1001668

PATIENT
  Sex: Male
  Weight: 75.8 kg

DRUGS (9)
  1. CLOLAR [Suspect]
     Indication: HAEMATOLOGICAL MALIGNANCY
     Dosage: 70 MG, QD X 5 DOSES
     Route: 065
     Dates: start: 20110622, end: 20110626
  2. ONDANSETRON [Concomitant]
     Indication: NAUSEA
     Dosage: 24 MG, QD
     Route: 042
     Dates: start: 20110622, end: 20110626
  3. PANTOPRAZOLE [Concomitant]
     Indication: PROPHYLAXIS
     Dosage: 40 MG, QD
     Route: 048
     Dates: start: 20110620
  4. POSACONAZOLE [Concomitant]
     Indication: PROPHYLAXIS
     Dosage: 200 MG, TID
     Route: 048
     Dates: start: 20110622, end: 20110706
  5. TEMAZEPAM [Concomitant]
     Indication: SLEEP DISORDER
     Dosage: 15 MG,QHS
     Route: 048
     Dates: start: 20110622
  6. ONDANSETRON [Concomitant]
     Indication: VOMITING
  7. CYTARABINE [Suspect]
     Indication: HAEMATOLOGICAL MALIGNANCY
     Dosage: UNK
     Route: 065
     Dates: start: 20110622, end: 20110626
  8. DEXAMETHASONE [Concomitant]
     Indication: NAUSEA
     Dosage: 10 MG, QD
     Route: 042
     Dates: start: 20110622, end: 20110626
  9. DEXAMETHASONE [Concomitant]
     Indication: VOMITING

REACTIONS (2)
  - CAPILLARY LEAK SYNDROME [None]
  - BLISTER [None]
